FAERS Safety Report 6768781-X (Version None)
Quarter: 2010Q2

REPORT INFORMATION
  Report Type: 
  Country: None (occurrence: None)
  Receive Date: 20100611
  Receipt Date: 20100527
  Transmission Date: 20101027
  Serious: Yes (Other)
  Sender: FDA-Public Use
  Company Number: AUR-APL-2010-01423

PATIENT
  Age: 72 Year
  Sex: Male

DRUGS (20)
  1. HYDROCHLOROTHIAZIDE [Suspect]
     Dosage: 12.5 MG, DAILY, ORAL
     Route: 048
  2. SIMVASTATIN [Suspect]
     Dosage: 80MG, QHS, ORAL
     Route: 048
  3. ASPIRIN [Suspect]
     Dosage: 81MG - DAILY - ORAL
     Route: 048
  4. CARBOPLATIN [Suspect]
     Indication: CHEMOTHERAPY
     Dosage: CYCLIC - IV
     Route: 042
     Dates: start: 20100414
  5. CLOPIDOGREL [Suspect]
     Dosage: 75MG -DAILY -ORAL
     Route: 048
  6. COREG [Suspect]
     Dosage: 25MG - BID - ORAL
     Route: 048
  7. DEXAMETHASONE [Suspect]
     Indication: PROPHYLAXIS OF NAUSEA AND VOMITING
     Dosage: 20MG - CYCLIC - IV
     Route: 042
  8. DEXAMETHASONE [Suspect]
     Indication: VOMITING
     Dosage: 20MG - CYCLIC - IV
     Route: 042
  9. DIPHENHDRAMINE [Suspect]
     Indication: PROPHYLAXIS
     Dosage: 50MG - CYCLIC - IV
     Route: 042
  10. FOSINOPRIL SODIUM [Suspect]
     Dosage: 20MG - BID - ORAL
  11. MEGESTROL ACETATE [Suspect]
     Indication: APPETITE DISORDER
     Dosage: 40MG - QID - ORAL
     Route: 048
  12. PACLITAXEL [Suspect]
     Indication: CHEMOTHERAPY
     Dosage: 200MG/M2 - CYCLIC  - IV
     Route: 042
     Dates: start: 20100414
  13. PROMETHAZINE HCL TABLET [Suspect]
     Dosage: 25MG - PRN - ORAL
     Route: 048
  14. OMEPRAZOLE [Suspect]
     Dosage: 20MG - BID -ORAL
     Route: 048
  15. TOLTERODINE [Suspect]
     Dosage: 4MG - DAILY - ORAL
     Route: 048
  16. VITAMIN D [Suspect]
     Indication: PROPHYLAXIS OF NAUSEA AND VOMITING
     Dosage: 50000 UNIT - CYCLIC
  17. VITAMIN D [Suspect]
     Indication: VOMITING
     Dosage: 50000 UNIT - CYCLIC
  18. ZANTAC [Suspect]
     Indication: PROPHYLAXIS
     Dosage: 50MG - CYCLIC - IV
     Route: 042
  19. ZOFRAN [Suspect]
     Indication: PROPHYLAXIS OF NAUSEA AND VOMITING
     Dosage: 8MG - CYCLIC - IV
     Route: 042
  20. ZOFRAN [Suspect]
     Indication: VOMITING
     Dosage: 8MG - CYCLIC - IV
     Route: 042

REACTIONS (27)
  - ABASIA [None]
  - ASTHENIA [None]
  - BLOOD CHLORIDE DECREASED [None]
  - BLOOD GLUCOSE INCREASED [None]
  - BLOOD POTASSIUM DECREASED [None]
  - BLOOD SODIUM DECREASED [None]
  - BLOOD UREA INCREASED [None]
  - DECREASED APPETITE [None]
  - DEHYDRATION [None]
  - DIARRHOEA [None]
  - FAILURE TO THRIVE [None]
  - HAEMATOCRIT DECREASED [None]
  - HAEMOGLOBIN DECREASED [None]
  - HYPOCALCAEMIA [None]
  - HYPOMAGNESAEMIA [None]
  - HYPONATRAEMIA [None]
  - HYPOPHAGIA [None]
  - LISTLESS [None]
  - LUNG ADENOCARCINOMA [None]
  - MONOCYTE COUNT DECREASED [None]
  - NEUTROPENIA [None]
  - NEUTROPHIL COUNT DECREASED [None]
  - PNEUMONIA [None]
  - PROTHROMBIN TIME PROLONGED [None]
  - RED BLOOD CELL COUNT DECREASED [None]
  - TACHYCARDIA [None]
  - WHITE BLOOD CELL COUNT DECREASED [None]
